FAERS Safety Report 4351301-7 (Version None)
Quarter: 2004Q2

REPORT INFORMATION
  Report Type: 
  Country: None (occurrence: None)
  Receive Date: 20040430
  Receipt Date: 20040430
  Transmission Date: 20050107
  Serious: Yes (Other)
  Sender: FDA-Public Use
  Company Number: None

PATIENT
  Age: 22 Year
  Sex: Female
  Weight: 50.8029 kg

DRUGS (4)
  1. ZOLOFT [Suspect]
     Indication: ANXIETY
     Dosage: 150MG ONCE ORAL
     Route: 048
     Dates: start: 20030103, end: 20040429
  2. ZOLOFT [Suspect]
     Indication: DEPRESSION
     Dosage: 150MG ONCE ORAL
     Route: 048
     Dates: start: 20030103, end: 20040429
  3. CORTICOSTEROID ULTRAVATE [Concomitant]
  4. ELIDEL [Concomitant]

REACTIONS (1)
  - DRUG ERUPTION [None]
